FAERS Safety Report 7093294-8 (Version None)
Quarter: 2010Q4

REPORT INFORMATION
  Report Type: 
  Country: None (occurrence: None)
  Receive Date: 20101110
  Receipt Date: 20100414
  Transmission Date: 20110411
  Serious: No
  Sender: FDA-Public Use
  Company Number: US-PFIZER INC-2010047957

PATIENT
  Sex: Female
  Weight: 66.667 kg

DRUGS (1)
  1. BEXTRA [Suspect]
     Dosage: 20 MG, 1X/DAY
     Route: 048
     Dates: start: 20010101, end: 20010101

REACTIONS (1)
  - TOOTHACHE [None]
